FAERS Safety Report 5822376-0 (Version None)
Quarter: 2008Q3

REPORT INFORMATION
  Report Type: 
  Country: None (occurrence: None)
  Receive Date: 20080723
  Receipt Date: 20080723
  Transmission Date: 20090109
  Serious: Yes (Other)
  Sender: FDA-Public Use
  Company Number: None

PATIENT
  Age: 65 Year
  Sex: Female
  Weight: 67.1324 kg

DRUGS (2)
  1. CIPRO [Suspect]
     Indication: BRONCHITIS
  2. CIPRO [Suspect]
     Indication: LUNG INFECTION

REACTIONS (2)
  - TENDON INJURY [None]
  - TENDON PAIN [None]
